FAERS Safety Report 25790606 (Version 1)
Quarter: 2025Q3

REPORT INFORMATION
  Report Type: Spontaneous
  Country: US (occurrence: US)
  Receive Date: 20250911
  Receipt Date: 20250911
  Transmission Date: 20251021
  Serious: No
  Sender: COSETTE PHARMACEUTICALS INC
  Company Number: US-COSETTE-CP2025US000878

PATIENT
  Sex: Female

DRUGS (2)
  1. NYSTATIN [Suspect]
     Active Substance: NYSTATIN
     Indication: Vulvovaginal erythema
     Route: 067
  2. NYSTATIN [Suspect]
     Active Substance: NYSTATIN
     Indication: Vulvovaginal pruritus

REACTIONS (4)
  - Pruritus [Unknown]
  - Condition aggravated [Unknown]
  - Exposure during pregnancy [Unknown]
  - Off label use [Unknown]
